FAERS Safety Report 6720644-1 (Version None)
Quarter: 2010Q2

REPORT INFORMATION
  Report Type: 
  Country: None (occurrence: None)
  Receive Date: 20100511
  Receipt Date: 20100428
  Transmission Date: 20101027
  Serious: Yes (Death)
  Sender: FDA-Public Use
  Company Number: GB-MYLANLABS-2010S1007318

PATIENT
  Sex: Male
  Weight: 41 kg

DRUGS (11)
  1. SODIUM VALPROATE [Suspect]
     Indication: DRUG USE FOR UNKNOWN INDICATION
  2. ZAPONEX [Suspect]
     Indication: DRUG USE FOR UNKNOWN INDICATION
     Route: 048
     Dates: start: 20040720, end: 20090421
  3. AMISULPRIDE [Concomitant]
     Indication: DRUG USE FOR UNKNOWN INDICATION
  4. BECLOMETHASONE DIPROPIONATE [Concomitant]
     Indication: DRUG USE FOR UNKNOWN INDICATION
     Route: 055
  5. FEXOFENADINE [Concomitant]
     Indication: DRUG USE FOR UNKNOWN INDICATION
  6. HALOPERIDOL [Concomitant]
     Indication: DRUG USE FOR UNKNOWN INDICATION
  7. LORAZEPAM [Concomitant]
     Indication: DRUG USE FOR UNKNOWN INDICATION
  8. OXYTETRACYCLINE [Concomitant]
     Indication: DRUG USE FOR UNKNOWN INDICATION
  9. PREGABALIN [Concomitant]
     Indication: DRUG USE FOR UNKNOWN INDICATION
  10. SALBUTAMOL [Concomitant]
     Indication: DRUG USE FOR UNKNOWN INDICATION
     Route: 055
  11. SERTRALINE [Concomitant]
     Indication: DRUG USE FOR UNKNOWN INDICATION

REACTIONS (4)
  - BRONCHITIS [None]
  - EPILEPSY [None]
  - HYPOTHYROIDISM [None]
  - SUDDEN DEATH [None]
